FAERS Safety Report 20472707 (Version 1)
Quarter: 2022Q1

REPORT INFORMATION
  Report Type: Other
  Country: CA (occurrence: CA)
  Receive Date: 20220215
  Receipt Date: 20220215
  Transmission Date: 20220423
  Serious: Yes (Hospitalization, Other)
  Sender: FDA-Public Use
  Company Number: CA-APOTEX-2022AP003281

PATIENT
  Age: 19 Year
  Sex: Male

DRUGS (11)
  1. OLANZAPINE [Suspect]
     Active Substance: OLANZAPINE
     Indication: Impulsive behaviour
     Dosage: 10 MILLIGRAM, QD
     Route: 065
  2. OLANZAPINE [Suspect]
     Active Substance: OLANZAPINE
     Indication: Aggression
  3. ZOPICLONE [Suspect]
     Active Substance: ZOPICLONE
     Indication: Impulsive behaviour
     Dosage: 15 MILLIGRAM, QID
     Route: 048
  4. ZOPICLONE [Suspect]
     Active Substance: ZOPICLONE
     Indication: Aggression
     Dosage: 7.5 MILLIGRAM, QD
     Route: 065
  5. ZOPICLONE [Suspect]
     Active Substance: ZOPICLONE
     Dosage: 7.5 MILLIGRAM, QID
     Route: 048
  6. ARIPIPRAZOLE [Suspect]
     Active Substance: ARIPIPRAZOLE
     Indication: Impulsive behaviour
     Dosage: 400 MILLIGRAM, ONCE EVERY FOUR WEEKS
     Route: 030
  7. ARIPIPRAZOLE [Suspect]
     Active Substance: ARIPIPRAZOLE
     Indication: Aggression
  8. CLOZAPINE [Concomitant]
     Active Substance: CLOZAPINE
     Indication: Impulsive behaviour
     Dosage: 150 MILLIGRAM, BID
     Route: 048
  9. CLOZAPINE [Concomitant]
     Active Substance: CLOZAPINE
     Indication: Aggression
  10. VENLAFAXINE HYDROCHLORIDE [Concomitant]
     Active Substance: VENLAFAXINE HYDROCHLORIDE
     Indication: Impulsive behaviour
     Dosage: 75 MILLIGRAM, QD
     Route: 065
  11. VENLAFAXINE HYDROCHLORIDE [Concomitant]
     Active Substance: VENLAFAXINE HYDROCHLORIDE
     Indication: Aggression

REACTIONS (2)
  - Off label use [Unknown]
  - Dystonia [Unknown]
